FAERS Safety Report 5884766-X (Version None)
Quarter: 2008Q3

REPORT INFORMATION
  Report Type: 
  Country: None (occurrence: None)
  Receive Date: 20080915
  Receipt Date: 20080915
  Transmission Date: 20090109
  Serious: Yes (Other)
  Sender: FDA-Public Use
  Company Number: None

PATIENT
  Age: 38 Year
  Sex: Female

DRUGS (1)
  1. ISOVUE-300 [Suspect]
     Indication: SCAN
     Dosage: 100ML X 1 DOSE IV BOLUS
     Route: 040
     Dates: start: 20080825, end: 20080825

REACTIONS (3)
  - CONTRAST MEDIA REACTION [None]
  - PRURITUS [None]
  - URTICARIA [None]
